FAERS Safety Report 8728301 (Version 2)
Quarter: 2012Q4

REPORT INFORMATION
  Report Type: 
  Country: US (occurrence: US)
  Receive Date: 20120817
  Receipt Date: 20120828
  Transmission Date: 20130627
  Serious: Yes (Other)
  Sender: FDA-Public Use
  Company Number: US-PFIZER INC-2012197579

PATIENT
  Age: 49 Year
  Sex: Female
  Weight: 49.43 kg

DRUGS (11)
  1. XALKORI [Suspect]
     Indication: LUNG NEOPLASM MALIGNANT
     Dosage: 250 mg, 2x/day
     Route: 048
     Dates: start: 20111002
  2. XALKORI [Suspect]
     Dosage: 250 mg, Daily
     Route: 048
  3. XALKORI [Suspect]
     Dosage: 200 mg, Daily
     Route: 048
     Dates: start: 201206
  4. XALKORI [Suspect]
     Dosage: 200 mg, 2x/day
     Route: 048
     Dates: start: 20120803, end: 20120818
  5. CLARITHROMYCIN [Suspect]
     Dosage: UNK
  6. CARAFATE [Suspect]
     Indication: OESOPHAGEAL PAIN
     Dosage: 1 g, 2x/day
     Dates: start: 2012
  7. CRESTOR [Concomitant]
     Indication: BLOOD CHOLESTEROL ABNORMAL
     Dosage: 20 mg, 2x/day
  8. ZETIA [Concomitant]
     Indication: BLOOD CHOLESTEROL ABNORMAL
     Dosage: 10 mg, daily
  9. ESTRADIOL [Concomitant]
     Indication: ENDOCRINE DISORDER
     Dosage: UNK
  10. PROGESTERONE [Concomitant]
     Indication: ENDOCRINE DISORDER
     Dosage: 0.5 mg, daily
  11. NOREPINEPHRINE [Concomitant]
     Indication: ENDOCRINE DISORDER
     Dosage: UNK

REACTIONS (7)
  - Haematemesis [Unknown]
  - Oesophageal obstruction [Not Recovered/Not Resolved]
  - Oesophageal pain [Not Recovered/Not Resolved]
  - Oesophageal spasm [Not Recovered/Not Resolved]
  - Neuropathy peripheral [Recovering/Resolving]
  - Dizziness [Recovered/Resolved]
  - Drug ineffective [Unknown]
